FAERS Safety Report 18511984 (Version 1)
Quarter: 2020Q4

REPORT INFORMATION
  Report Type: Spontaneous
  Country: US (occurrence: US)
  Receive Date: 20201117
  Receipt Date: 20201117
  Transmission Date: 20210114
  Serious: No
  Sender: FDA-Public Use
  Company Number: US-SA-2020SA326045

PATIENT

DRUGS (1)
  1. UNISOM SLEEPTABS [Suspect]
     Active Substance: DOXYLAMINE SUCCINATE
     Dosage: 6 DF
     Route: 065

REACTIONS (2)
  - Feeling abnormal [Unknown]
  - Intentional overdose [Unknown]
